FAERS Safety Report 7830925-6 (Version None)
Quarter: 2011Q4

REPORT INFORMATION
  Report Type: 
  Country: None (occurrence: None)
  Receive Date: 20111021
  Receipt Date: 20111017
  Transmission Date: 20120403
  Serious: Yes (Hospitalization, Other)
  Sender: FDA-Public Use
  Company Number: US-PFIZER INC-2011190452

PATIENT
  Sex: Male
  Weight: 83.9 kg

DRUGS (1)
  1. HYDROCORTISONE SODIUM SUCCINATE [Suspect]
     Indication: DRUG HYPERSENSITIVITY
     Dosage: 100 MG, EVERY 4 HRS
     Dates: start: 19560323, end: 19560326

REACTIONS (5)
  - FUNGAL INFECTION [None]
  - PNEUMONIA [None]
  - IMMUNE SYSTEM DISORDER [None]
  - HYPERTENSION [None]
  - EAR INFECTION [None]
